FAERS Safety Report 8447896 (Version 5)
Quarter: 2014Q2

REPORT INFORMATION
  Report Type: Spontaneous
  Country: US (occurrence: US)
  Receive Date: 20120308
  Receipt Date: 20140605
  Transmission Date: 20141212
  Serious: Yes (Hospitalization, Other)
  Sender: FDA-Public Use
  Company Number: US-009507513-1203USA00764

PATIENT
  Sex: Female
  Weight: 50.79 kg

DRUGS (7)
  1. FOSAMAX [Suspect]
     Indication: OSTEOPENIA
     Dosage: 10 MG, UNK
     Route: 048
     Dates: start: 1999, end: 200812
  2. FOSAMAX [Suspect]
     Indication: RHEUMATOID ARTHRITIS
     Dosage: 70 MG, QW
     Route: 048
     Dates: start: 1999, end: 200812
  3. FOSAMAX [Suspect]
     Dosage: MG
     Route: 048
     Dates: end: 20110413
  4. ALENDRONATE SODIUM [Suspect]
     Indication: OSTEOPENIA
     Dosage: 70 MG, QW
     Dates: start: 20090220, end: 20100524
  5. ALENDRONATE SODIUM [Suspect]
     Indication: RHEUMATOID ARTHRITIS
  6. ETODOLAC [Concomitant]
     Indication: RHEUMATOID ARTHRITIS
     Dosage: 500 MG, PRN
     Dates: start: 20040826
  7. PREMPRO [Concomitant]
     Dosage: UNK, ONCE

REACTIONS (39)
  - Intramedullary rod insertion [Unknown]
  - Cerebrovascular accident [Unknown]
  - Post procedural haemorrhage [Unknown]
  - Coronary artery disease [Unknown]
  - Fall [Unknown]
  - Coronary arterial stent insertion [Unknown]
  - Cardiac operation [Unknown]
  - Femur fracture [Unknown]
  - Anaemia [Unknown]
  - Femur fracture [Unknown]
  - Foot fracture [Unknown]
  - Tooth infection [Unknown]
  - Fall [Unknown]
  - Fall [Unknown]
  - Hypertension [Unknown]
  - Blood cholesterol increased [Unknown]
  - Chest pain [Unknown]
  - Back injury [Unknown]
  - Bursitis [Unknown]
  - Contusion [Unknown]
  - Osteoarthritis [Unknown]
  - Pollakiuria [Not Recovered/Not Resolved]
  - Biopsy cervix [Unknown]
  - Cervical polyp [Unknown]
  - Cervical polypectomy [Unknown]
  - Bacterial vaginosis [Unknown]
  - Atrophy [Unknown]
  - Anxiety [Unknown]
  - Muscle disorder [Unknown]
  - Foot fracture [Unknown]
  - Cellulitis [Unknown]
  - Dyspnoea [Unknown]
  - Hypoaesthesia [Unknown]
  - Rotator cuff syndrome [Unknown]
  - Muscle spasms [Unknown]
  - Musculoskeletal pain [Unknown]
  - Back pain [Unknown]
  - Off label use [Unknown]
  - Abdominal pain upper [Unknown]
